FAERS Safety Report 5993513-2 (Version None)
Quarter: 2008Q4

REPORT INFORMATION
  Report Type: 
  Country: None (occurrence: None)
  Receive Date: 20081210
  Receipt Date: 20081126
  Transmission Date: 20090506
  Serious: Yes (Death, Hospitalization)
  Sender: FDA-Public Use
  Company Number: 2008AL012211

PATIENT
  Age: 18 Year
  Sex: Female

DRUGS (6)
  1. PHENYTOIN [Suspect]
     Indication: CONVULSION
  2. ACYCLOVIR [Suspect]
     Indication: MENINGITIS
  3. TAZOCIN [Concomitant]
  4. GENTAMICIN [Concomitant]
  5. CEFOTAXIME [Concomitant]
  6. PREDNISOLONE [Concomitant]

REACTIONS (3)
  - MULTI-ORGAN FAILURE [None]
  - SEPSIS [None]
  - TOXIC EPIDERMAL NECROLYSIS [None]
